FAERS Safety Report 16302229 (Version 1)
Quarter: 2019Q2

REPORT INFORMATION
  Report Type: Spontaneous
  Country: GR (occurrence: GR)
  Receive Date: 20190512
  Receipt Date: 20190512
  Transmission Date: 20190711
  Serious: Yes (Other)
  Sender: FDA-Public Use
  Company Number: GR-AMGEN-GRCSP2019072488

PATIENT

DRUGS (5)
  1. LEUCOVORIN [FOLINIC ACID] [Suspect]
     Active Substance: LEUCOVORIN
     Indication: COLORECTAL CANCER METASTATIC
     Dosage: 400 MILLIGRAM/SQ. METER, Q2WK
     Route: 065
  2. PANITUMUMAB [Suspect]
     Active Substance: PANITUMUMAB
     Indication: COLORECTAL CANCER METASTATIC
     Dosage: 8 MILLIGRAM/KILOGRAM, Q2WK
     Route: 065
  3. IRINOTECAN [Suspect]
     Active Substance: IRINOTECAN
     Indication: COLORECTAL CANCER METASTATIC
     Dosage: 130 MILLIGRAM/SQ. METER, Q2WK
     Route: 065
  4. 5-FU [FLUOROURACIL] [Suspect]
     Active Substance: FLUOROURACIL
     Indication: COLORECTAL CANCER METASTATIC
     Dosage: 400 MILLIGRAM/SQ. METER, Q2WK
     Route: 040
  5. 5-FU [FLUOROURACIL] [Suspect]
     Active Substance: FLUOROURACIL
     Dosage: 1.200 MILLIGRAM/SQ. METER, Q2WK
     Route: 023

REACTIONS (8)
  - Neutropenia [Unknown]
  - Fatigue [Unknown]
  - Mucosal inflammation [Unknown]
  - Off label use [Unknown]
  - Intestinal perforation [Unknown]
  - Paronychia [Unknown]
  - Diarrhoea [Unknown]
  - Skin toxicity [Unknown]
